FAERS Safety Report 7786716-8 (Version None)
Quarter: 2011Q3

REPORT INFORMATION
  Report Type: 
  Country: None (occurrence: None)
  Receive Date: 20110929
  Receipt Date: 20110926
  Transmission Date: 20111222
  Serious: Yes (Life-Threatening, Other)
  Sender: FDA-Public Use
  Company Number: JP-PFIZER INC-2011141728

PATIENT
  Age: 50 Year
  Sex: Male

DRUGS (6)
  1. LYRICA [Suspect]
     Indication: HERNIA PAIN
     Dosage: 75 MG, 1X/DAY
     Route: 048
     Dates: start: 20101018, end: 20110215
  2. TANATRIL [Concomitant]
     Dosage: 5 MG DAILY
     Route: 048
  3. SALOBEL [Concomitant]
     Indication: HYPERURICAEMIA
     Dosage: 200 MG DAILY
     Route: 048
     Dates: end: 20110215
  4. NORVASC [Concomitant]
     Dosage: 5 MG DAILY
     Route: 048
  5. VALSARTAN [Concomitant]
     Dosage: 160 MG DAILY
     Route: 048
  6. SALOBEL [Concomitant]
     Dosage: 200MG DAILY
     Route: 048
     Dates: start: 20110218

REACTIONS (4)
  - HYPERKALAEMIA [None]
  - RENAL IMPAIRMENT [None]
  - C-REACTIVE PROTEIN INCREASED [None]
  - WHITE BLOOD CELL COUNT INCREASED [None]
